FAERS Safety Report 20696625 (Version 2)
Quarter: 2022Q3

REPORT INFORMATION
  Report Type: Spontaneous
  Country: CA (occurrence: CA)
  Receive Date: 20220411
  Receipt Date: 20220825
  Transmission Date: 20221026
  Serious: Yes (Other)
  Sender: FDA-Public Use
  Company Number: CA-ALLERGAN-2211092US

PATIENT
  Age: 78 Year
  Sex: Male

DRUGS (7)
  1. ACITRETIN [Suspect]
     Active Substance: ACITRETIN
     Indication: Product used for unknown indication
     Route: 048
  2. HUMIRA [Suspect]
     Active Substance: ADALIMUMAB
     Indication: Psoriasis
     Route: 058
  3. SKYRIZI [Suspect]
     Active Substance: RISANKIZUMAB-RZAA
     Indication: Product used for unknown indication
     Route: 058
  4. ALITRETINOIN [Suspect]
     Active Substance: ALITRETINOIN
     Indication: Product used for unknown indication
     Route: 065
  5. Salicylic Acid in clobetasol [Concomitant]
     Indication: Product used for unknown indication
  6. BRODALUMAB [Concomitant]
     Active Substance: BRODALUMAB
     Indication: Product used for unknown indication
     Route: 065
  7. liquor carbonis distillate [Concomitant]
     Indication: Product used for unknown indication

REACTIONS (17)
  - Bladder cancer [Not Recovered/Not Resolved]
  - Acrokeratosis paraneoplastica [Unknown]
  - Drug intolerance [Unknown]
  - Psoriasis [Unknown]
  - Acrokeratosis paraneoplastica [Unknown]
  - Epidermal necrosis [Unknown]
  - Limb discomfort [Unknown]
  - Hyperkeratosis [Not Recovered/Not Resolved]
  - Parakeratosis [Not Recovered/Not Resolved]
  - Acanthosis [Not Recovered/Not Resolved]
  - Superficial inflammatory dermatosis [Unknown]
  - Lichenoid keratosis [Not Recovered/Not Resolved]
  - Lymphocytic infiltration [Not Recovered/Not Resolved]
  - Unevaluable event [Not Recovered/Not Resolved]
  - Dermatitis psoriasiform [Not Recovered/Not Resolved]
  - Eczema [Unknown]
  - Drug ineffective [Unknown]
